FAERS Safety Report 25619774 (Version 4)
Quarter: 2025Q4

REPORT INFORMATION
  Report Type: Report from Study
  Country: US (occurrence: US)
  Receive Date: 20250729
  Receipt Date: 20251015
  Transmission Date: 20260117
  Serious: Yes (Other)
  Sender: ABBVIE
  Company Number: US-ABBVIE-6392046

PATIENT
  Age: 84 Year
  Sex: Female

DRUGS (3)
  1. RINVOQ [Suspect]
     Active Substance: UPADACITINIB
     Indication: Giant cell arteritis
     Dosage: LAST ADMINISTRATION IN 2025
     Route: 048
     Dates: start: 20250630
  2. RINVOQ [Suspect]
     Active Substance: UPADACITINIB
     Indication: Giant cell arteritis
     Route: 048
     Dates: start: 202507, end: 202507
  3. RINVOQ [Suspect]
     Active Substance: UPADACITINIB
     Indication: Giant cell arteritis
     Route: 048
     Dates: start: 20250818

REACTIONS (10)
  - Giant cell arteritis [Unknown]
  - Insomnia [Not Recovered/Not Resolved]
  - Sluggishness [Not Recovered/Not Resolved]
  - Joint stiffness [Unknown]
  - Bradykinesia [Not Recovered/Not Resolved]
  - Product prescribing issue [Unknown]
  - Therapeutic product effect delayed [Recovering/Resolving]
  - Sciatica [Unknown]
  - Balance disorder [Unknown]
  - Arthralgia [Unknown]

NARRATIVE: CASE EVENT DATE: 20250101
